FAERS Safety Report 9588701 (Version 1)
Quarter: 2013Q4

REPORT INFORMATION
  Report Type: Spontaneous
  Country: US (occurrence: US)
  Receive Date: 20131003
  Receipt Date: 20131003
  Transmission Date: 20140711
  Serious: No
  Sender: FDA-Public Use
  Company Number: US-AMGEN-USASP2012065569

PATIENT
  Age: 34 Year
  Sex: Female

DRUGS (1)
  1. ENBREL [Suspect]
     Indication: PSORIASIS
     Dosage: 50 MG, Q2WK
     Dates: start: 20120727

REACTIONS (4)
  - Folliculitis [Recovered/Resolved]
  - Sinusitis [Recovered/Resolved]
  - Subcutaneous abscess [Recovered/Resolved]
  - Vulvovaginal mycotic infection [Not Recovered/Not Resolved]
